FAERS Safety Report 18517022 (Version 1)
Quarter: 2020Q4

REPORT INFORMATION
  Report Type: Spontaneous
  Country: US (occurrence: US)
  Receive Date: 20201117
  Receipt Date: 20201117
  Transmission Date: 20210114
  Serious: Yes (Hospitalization)
  Sender: FDA-Public Use
  Company Number: None

PATIENT
  Age: 81 Year
  Sex: Male
  Weight: 74.39 kg

DRUGS (1)
  1. REVLIMID [Suspect]
     Active Substance: LENALIDOMIDE
     Indication: PLASMA CELL MYELOMA
     Route: 048
     Dates: start: 20201023, end: 20201116

REACTIONS (4)
  - Diarrhoea [None]
  - Urinary tract infection [None]
  - Fatigue [None]
  - Cardiac failure congestive [None]

NARRATIVE: CASE EVENT DATE: 20201110
